FAERS Safety Report 9119412 (Version 1)
Quarter: 2013Q1

REPORT INFORMATION
  Report Type: Spontaneous
  Country: GB (occurrence: GB)
  Receive Date: 20130207
  Receipt Date: 20130207
  Transmission Date: 20140127
  Serious: Yes (Death, Other)
  Sender: FDA-Public Use
  Company Number: CHNY2013GB000591

PATIENT
  Age: 54 Year
  Sex: Male

DRUGS (3)
  1. SCOPALAMINIE HYDROBROMIDE [Suspect]
     Indication: SALIVARY HYPERSECRETION
     Dosage: 150 MG, BID
  2. ZAPONEX [Suspect]
     Dosage: 100MG MANE, 200MG LUNCHTIME, 300MG NOCTE/300MG TEATIME
     Route: 048
     Dates: start: 20041022, end: 20121024
  3. CHLORPROMAZINE [Concomitant]
     Indication: AGITATION
     Dosage: UNK UNK, PRN
     Route: 048

REACTIONS (4)
  - Lymphoma [Fatal]
  - Pancreatic carcinoma [Not Recovered/Not Resolved]
  - Pleural effusion [Not Recovered/Not Resolved]
  - General physical health deterioration [Not Recovered/Not Resolved]
